FAERS Safety Report 9183178 (Version 2)
Quarter: 2014Q1

REPORT INFORMATION
  Report Type: Spontaneous
  Country: US (occurrence: US)
  Receive Date: 20130322
  Receipt Date: 20140318
  Transmission Date: 20141002
  Serious: Yes (Other)
  Sender: FDA-Public Use
  Company Number: US-BRISTOL-MYERS SQUIBB COMPANY-16388712

PATIENT
  Age: 68 Year
  Sex: Male
  Weight: 113 kg

DRUGS (24)
  1. ERBITUX [Suspect]
     Indication: SQUAMOUS CELL CARCINOMA
     Dosage: INF:5,720MG WEEKLYX6,16FEB12
     Route: 042
     Dates: start: 20120112, end: 20120216
  2. PROGRAF [Concomitant]
     Dosage: 1DF=3MG QAM AND 2MG QPM,1MG CAPS
     Route: 048
  3. CELLCEPT [Concomitant]
     Dosage: 1DF=1000MG QAM AND 500MG QPM
  4. RAMIPRIL [Concomitant]
  5. PREDNISONE [Concomitant]
     Dosage: ONE TAB
     Route: 048
  6. KLOR-CON [Concomitant]
     Dosage: 1DF=20MEQ QAM AND 10MEQ QPM
  7. LEVOTHYROXINE [Concomitant]
  8. ALLOPURINOL [Concomitant]
     Dosage: TAB
     Route: 048
  9. TRIAMTERENE + HCTZ [Concomitant]
     Dosage: 1DF=37.5MG-25MG
     Route: 048
  10. CALCIUM [Concomitant]
     Dosage: TABS
     Route: 048
  11. VITAMIN D [Concomitant]
     Route: 048
  12. VITAMIN E [Concomitant]
     Dosage: CAPS
     Route: 048
  13. COQ10 [Concomitant]
  14. BENADRYL [Concomitant]
     Indication: PREMEDICATION
  15. ATENOLOL [Concomitant]
     Dosage: TABS
     Route: 048
  16. COLCHICINE [Concomitant]
     Dosage: ONE TAB ONCE TO TWICE DAILY
     Route: 048
  17. POTASSIUM CHLORIDE [Concomitant]
     Dosage: 2 TABS AM,1 TAB PM
     Route: 048
  18. SYNTHROID [Concomitant]
     Route: 048
  19. ALTACE [Concomitant]
     Dosage: CAPS
     Route: 048
  20. AMLODIPINE BESYLATE [Concomitant]
     Dosage: 1/2 TAB
     Route: 048
  21. MINOCYCLINE HCL [Concomitant]
     Dosage: TAB
     Route: 048
  22. CLEOCIN-T [Concomitant]
     Dosage: THIN FILM,1% GEL
  23. VITAMIN B COMPLEX [Concomitant]
     Dosage: 1 CAPS
     Route: 048
  24. SLOW-MAG [Concomitant]
     Dosage: 1 DF: 71.5-119MG
     Route: 048

REACTIONS (3)
  - Malignant neoplasm progression [Unknown]
  - Dermatitis acneiform [Not Recovered/Not Resolved]
  - Skin fissures [Not Recovered/Not Resolved]
